FAERS Safety Report 15285119 (Version 1)
Quarter: 2018Q4

REPORT INFORMATION
  Report Type: Spontaneous
  Country: US (occurrence: US)
  Receive Date: 20180816
  Receipt Date: 20180816
  Transmission Date: 20190204
  Serious: No
  Sender: FDA-Public Use
  Company Number: US-SA-2018SA223664

PATIENT
  Age: 66 Year
  Sex: Female

DRUGS (1)
  1. ALLEGRA-D 24 HOUR [Suspect]
     Active Substance: FEXOFENADINE HYDROCHLORIDE\PSEUDOEPHEDRINE HYDROCHLORIDE
     Dosage: 180MG/240MG

REACTIONS (4)
  - Nasopharyngitis [Unknown]
  - Ear pruritus [Unknown]
  - Drug ineffective [Unknown]
  - Ear discomfort [Unknown]
